FAERS Safety Report 6680989-0 (Version None)
Quarter: 2010Q2

REPORT INFORMATION
  Report Type: 
  Country: None (occurrence: None)
  Receive Date: 20100414
  Receipt Date: 20100412
  Transmission Date: 20101027
  Serious: Yes (Life-Threatening, Hospitalization)
  Sender: FDA-Public Use
  Company Number: PRIUSA1999007384

PATIENT
  Age: 73 Year
  Sex: Male

DRUGS (2)
  1. LEVAQUIN [Suspect]
     Route: 048
     Dates: start: 19991013, end: 19991014
  2. LEVAQUIN [Suspect]
     Indication: PNEUMONIA
     Route: 048
     Dates: start: 19991013, end: 19991014

REACTIONS (1)
  - HYPONATRAEMIA [None]
